FAERS Safety Report 5210163-6 (Version None)
Quarter: 2006Q4

REPORT INFORMATION
  Report Type: 
  Country: None (occurrence: None)
  Receive Date: 20061103
  Receipt Date: 20060705
  Transmission Date: 20070319
  Serious: Yes (Other)
  Sender: FDA-Public Use
  Company Number: 455019

PATIENT
  Age: 77 Year
  Sex: Female
  Weight: 54.4 kg

DRUGS (2)
  1. BONIVA [Suspect]
     Indication: DRUG USE FOR UNKNOWN INDICATION
     Dosage: 3 MG; INTRAVENOUS
     Route: 042
     Dates: start: 20060621
  2. BENADRYL (ACRIVASTINE/AMMONIUM CHLORIDE/CAMPHOR/DIPHENHYDRAMINE/MENTHO [Concomitant]

REACTIONS (6)
  - DIZZINESS [None]
  - INFLUENZA LIKE ILLNESS [None]
  - INJECTION SITE EXTRAVASATION [None]
  - INJECTION SITE HAEMATOMA [None]
  - INJECTION SITE INFLAMMATION [None]
  - RESPIRATORY DISORDER [None]
